FAERS Safety Report 8743424 (Version 2)
Quarter: 2012Q4

REPORT INFORMATION
  Report Type: 
  Country: US (occurrence: US)
  Receive Date: 20120824
  Receipt Date: 20120926
  Transmission Date: 20130627
  Serious: Yes (Other)
  Sender: FDA-Public Use
  Company Number: US-ABBOTT-12P-163-0969793-00

PATIENT
  Sex: Male

DRUGS (2)
  1. HUMIRA 40 MG/ 0.8 ML PRE-FILLED SYRINGE [Suspect]
     Indication: PSORIASIS
     Dates: start: 201006, end: 20120604
  2. METHOTREXATE [Suspect]
     Dates: start: 200501, end: 200712

REACTIONS (2)
  - Visual impairment [Unknown]
  - Mycosis fungoides [Unknown]
